FAERS Safety Report 15377389 (Version 1)
Quarter: 2018Q3

REPORT INFORMATION
  Report Type: Spontaneous
  Country: US (occurrence: US)
  Receive Date: 20180906
  Receipt Date: 20180906
  Transmission Date: 20181010
  Serious: No
  Sender: FDA-Public Use
  Company Number: None

PATIENT
  Age: 17 Year
  Sex: Male
  Weight: 46.8 kg

DRUGS (8)
  1. VYVANSE [Suspect]
     Active Substance: LISDEXAMFETAMINE DIMESYLATE
     Indication: ATTENTION DEFICIT/HYPERACTIVITY DISORDER
     Dosage: ?          QUANTITY:1 DF DOSAGE FORM;?
     Route: 048
     Dates: start: 20171111
  2. MUTI?VITAMIN [Concomitant]
  3. N?ACETYLCYSTINE [Concomitant]
     Active Substance: ACETYLCYSTEINE
  4. ALLEGRA [Concomitant]
     Active Substance: FEXOFENADINE HYDROCHLORIDE
  5. MAGNESIUM MALATE [Concomitant]
  6. ZANTAC [Concomitant]
     Active Substance: RANITIDINE HYDROCHLORIDE
  7. NASAL CROM NASAL SPRAY [Concomitant]
  8. L?TYROSINE [Concomitant]
     Active Substance: TYROSINE

REACTIONS (2)
  - Sensation of foreign body [None]
  - Cough [None]

NARRATIVE: CASE EVENT DATE: 20180607
